FAERS Safety Report 13234352 (Version 4)
Quarter: 2017Q2

REPORT INFORMATION
  Report Type: Spontaneous
  Country: DE (occurrence: DE)
  Receive Date: 20170215
  Receipt Date: 20170420
  Transmission Date: 20170830
  Serious: Yes (Other)
  Sender: FDA-Public Use
  Company Number: DE-BRISTOL-MYERS SQUIBB COMPANY-BMS-2017-006768

PATIENT
  Age: 51 Year
  Sex: Female
  Weight: 87 kg

DRUGS (11)
  1. ATORVASTATIN [Concomitant]
     Active Substance: ATORVASTATIN
     Indication: BLOOD CHOLESTEROL
     Dosage: 1 DF, UNK
     Route: 048
  2. VALDOXAN [Concomitant]
     Active Substance: AGOMELATINE
     Indication: PRODUCT USED FOR UNKNOWN INDICATION
     Route: 048
  3. VENLAFAXINE [Concomitant]
     Active Substance: VENLAFAXINE HYDROCHLORIDE
     Indication: AFFECTIVE DISORDER
     Dosage: 1 DF, UNK
     Route: 048
  4. JODINAT [Concomitant]
     Indication: IODINE DEFICIENCY
     Dosage: 1 DF, QD
     Route: 048
  5. ELIQUIS [Suspect]
     Active Substance: APIXABAN
     Indication: DEEP VEIN THROMBOSIS
     Dosage: 2.5 MG, BID
     Route: 065
     Dates: start: 20170102
  6. NITROFURANTOINE [Concomitant]
     Indication: PROPHYLAXIS
     Route: 048
  7. URIVESC [Concomitant]
     Active Substance: TROSPIUM CHLORIDE
     Indication: PROPHYLAXIS
     Route: 048
  8. SALBUTAMOL [Concomitant]
     Active Substance: ALBUTEROL
     Indication: PRODUCT USED FOR UNKNOWN INDICATION
     Route: 065
  9. OMEPRAZOLE. [Concomitant]
     Active Substance: OMEPRAZOLE
     Indication: HYPERCHLORHYDRIA
     Dosage: 1 DF, QD
     Route: 048
  10. ELIQUIS [Suspect]
     Active Substance: APIXABAN
     Indication: THROMBOPHLEBITIS SUPERFICIAL
     Dosage: 5 MG, BID
     Route: 065
  11. SYMBICORT [Concomitant]
     Active Substance: BUDESONIDE\FORMOTEROL FUMARATE DIHYDRATE
     Indication: COUGH
     Route: 065

REACTIONS (13)
  - Noninfective gingivitis [Not Recovered/Not Resolved]
  - Gingival bleeding [Recovered/Resolved]
  - Hot flush [Recovered/Resolved]
  - Blood urine present [Not Recovered/Not Resolved]
  - Thrombosis [Recovered/Resolved]
  - Bone pain [Recovered/Resolved]
  - Arthralgia [Not Recovered/Not Resolved]
  - Feeling cold [Recovered/Resolved]
  - Alopecia [Recovered/Resolved]
  - Fatigue [Unknown]
  - Thrombophlebitis superficial [Unknown]
  - Infection [Not Recovered/Not Resolved]
  - Pallor [Recovered/Resolved]

NARRATIVE: CASE EVENT DATE: 20170110
